FAERS Safety Report 20958179 (Version 2)
Quarter: 2024Q3

REPORT INFORMATION
  Report Type: Spontaneous
  Country: US (occurrence: US)
  Receive Date: 20220614
  Receipt Date: 20240710
  Transmission Date: 20241016
  Serious: No
  Sender: PIERRE FABRE MEDICAMENT
  Company Number: US-PFM-2021-04298

PATIENT
  Sex: Female
  Weight: 7 kg

DRUGS (2)
  1. HEMANGEOL [Suspect]
     Active Substance: PROPRANOLOL HYDROCHLORIDE
     Indication: Haemangioma
     Dosage: 3 ML, BID (2/DAY)
     Route: 065
  2. HEMANGEOL [Suspect]
     Active Substance: PROPRANOLOL HYDROCHLORIDE
     Dosage: 3.8 ML, BID (2/DAY)
     Route: 065

REACTIONS (3)
  - Cough [Not Recovered/Not Resolved]
  - Haemangioma [Not Recovered/Not Resolved]
  - Condition aggravated [Not Recovered/Not Resolved]
